FAERS Safety Report 24794062 (Version 1)
Quarter: 2024Q4

REPORT INFORMATION
  Report Type: Spontaneous
  Country: CN (occurrence: CN)
  Receive Date: 20241231
  Receipt Date: 20241231
  Transmission Date: 20250114
  Serious: Yes (Death, Other)
  Sender: PFIZER
  Company Number: CN-PFIZER INC-PV202400166798

PATIENT
  Age: 68 Year
  Sex: Male

DRUGS (2)
  1. TAFAMIDIS [Suspect]
     Active Substance: TAFAMIDIS
     Dosage: 61 MG, DAILY
     Dates: start: 20210419, end: 20210423
  2. TAFAMIDIS [Suspect]
     Active Substance: TAFAMIDIS
     Dosage: 61 MG, ALTERNATE DAY
     Dates: start: 20210511

REACTIONS (7)
  - Cardiac failure [Fatal]
  - Drug ineffective [Fatal]
  - Alanine aminotransferase increased [Recovered/Resolved]
  - Blood creatinine increased [Recovering/Resolving]
  - N-terminal prohormone brain natriuretic peptide increased [Recovering/Resolving]
  - Nausea [Recovering/Resolving]
  - Vomiting [Recovering/Resolving]

NARRATIVE: CASE EVENT DATE: 20210101
